FAERS Safety Report 5028171-7 (Version None)
Quarter: 2006Q2

REPORT INFORMATION
  Report Type: 
  Country: None (occurrence: None)
  Receive Date: 20060613
  Receipt Date: 20060601
  Transmission Date: 20061013
  Serious: Yes (Life-Threatening)
  Sender: FDA-Public Use
  Company Number: GXKR2006TR03123

PATIENT
  Age: 60 Year
  Sex: Female

DRUGS (1)
  1. GABAPENTIN [Suspect]
     Indication: SCIATICA
     Dosage: 300 MG, ORAL
     Route: 048

REACTIONS (3)
  - BLOOD BICARBONATE DECREASED [None]
  - COMA [None]
  - HAEMODIALYSIS [None]
